FAERS Safety Report 12212742 (Version 1)
Quarter: 2016Q1

REPORT INFORMATION
  Report Type: Spontaneous
  Country: US (occurrence: US)
  Receive Date: 20160328
  Receipt Date: 20160328
  Transmission Date: 20160526
  Serious: No
  Sender: FDA-Public Use
  Company Number: US-STRIDES ARCOLAB LIMITED-2015SP002634

PATIENT

DRUGS (5)
  1. CALCITRIOL. [Suspect]
     Active Substance: CALCITRIOL
     Indication: HYPERPARATHYROIDISM SECONDARY
     Dosage: UNK
  2. VITAMIN D [Concomitant]
     Active Substance: CHOLECALCIFEROL
     Indication: LOW TURNOVER OSTEOPATHY
     Dosage: UNK
  3. CALCITRIOL. [Suspect]
     Active Substance: CALCITRIOL
     Indication: LOW TURNOVER OSTEOPATHY
  4. CALCIUM [Concomitant]
     Active Substance: CALCIUM
     Indication: LOW TURNOVER OSTEOPATHY
     Dosage: UNK
  5. PHOSPHORUS [Concomitant]
     Active Substance: PHOSPHORUS
     Indication: LOW TURNOVER OSTEOPATHY
     Dosage: UNK

REACTIONS (1)
  - Blood parathyroid hormone decreased [Unknown]
